FAERS Safety Report 23675534 (Version 1)
Quarter: 2024Q1

REPORT INFORMATION
  Report Type: Spontaneous
  Country: FR (occurrence: FR)
  Receive Date: 20240327
  Receipt Date: 20240327
  Transmission Date: 20240409
  Serious: Yes (Hospitalization, Other)
  Sender: FDA-Public Use
  Company Number: FR-AFSSAPS-AN2024000346

PATIENT
  Age: 15 Year
  Sex: Female
  Weight: 47 kg

DRUGS (2)
  1. ISOTRETINOIN [Suspect]
     Active Substance: ISOTRETINOIN
     Indication: Acne
     Dosage: 1 DOSAGE FORM, ONCE A DAY
     Route: 048
     Dates: start: 202201, end: 202301
  2. ISOTRETINOIN [Suspect]
     Active Substance: ISOTRETINOIN
     Indication: Acne
     Dosage: 1 DOSAGE FORM, ONCE A DAY
     Route: 003
     Dates: start: 20211110, end: 202201

REACTIONS (2)
  - Suicidal ideation [Recovering/Resolving]
  - Mixed anxiety and depressive disorder [Recovering/Resolving]

NARRATIVE: CASE EVENT DATE: 20211201
